FAERS Safety Report 9727066 (Version 3)
Quarter: 2016Q1

REPORT INFORMATION
  Report Type: Spontaneous
  Country: US (occurrence: US)
  Receive Date: 20131203
  Receipt Date: 20160111
  Transmission Date: 20160526
  Serious: Yes (Hospitalization)
  Sender: FDA-Public Use
  Company Number: US-BAYER-2013-144774

PATIENT
  Age: 22 Year
  Sex: Female
  Weight: 86.17 kg

DRUGS (15)
  1. FIORICET [Concomitant]
     Active Substance: ACETAMINOPHEN\BUTALBITAL\CAFFEINE
  2. DIOVAN [HYDROCHLOROTHIAZIDE,VALSARTAN] [Concomitant]
     Dosage: 160/25 MG DAILY
     Route: 048
  3. METHYLPREDNISOLONE. [Concomitant]
     Active Substance: METHYLPREDNISOLONE
     Dosage: 4 MG, UNK
  4. ADVIL [Concomitant]
     Active Substance: IBUPROFEN
  5. TYLENOL EXTRA STRENGTH [Concomitant]
     Active Substance: ACETAMINOPHEN
  6. ACETAZOLAMIDE. [Concomitant]
     Active Substance: ACETAZOLAMIDE
  7. OCELLA [Suspect]
     Active Substance: DROSPIRENONE\ETHINYL ESTRADIOL
     Dosage: UNK
     Dates: start: 201107, end: 201108
  8. BIAXIN [Concomitant]
     Active Substance: CLARITHROMYCIN
  9. DILAUDID [Concomitant]
     Active Substance: HYDROMORPHONE HYDROCHLORIDE
  10. PERCOCET [Concomitant]
     Active Substance: ACETAMINOPHEN\OXYCODONE HYDROCHLORIDE
  11. NORCO [Concomitant]
     Active Substance: ACETAMINOPHEN\HYDROCODONE BITARTRATE
  12. CLARITHROMYCIN. [Concomitant]
     Active Substance: CLARITHROMYCIN
     Dosage: 2 TABLETS
     Route: 048
  13. COLACE [Concomitant]
     Active Substance: DOCUSATE SODIUM
  14. OMNICEF [Concomitant]
     Active Substance: CEFDINIR
  15. DIAMOX SEQUELS [Concomitant]
     Active Substance: ACETAZOLAMIDE

REACTIONS (10)
  - Cerebral thrombosis [None]
  - Thrombosis [None]
  - Craniocerebral injury [None]
  - Headache [None]
  - General physical health deterioration [None]
  - Intracranial pressure increased [None]
  - Injury [None]
  - Pain [None]
  - Intracranial venous sinus thrombosis [Not Recovered/Not Resolved]
  - Blindness [None]

NARRATIVE: CASE EVENT DATE: 201108
